FAERS Safety Report 5875138-2 (Version None)
Quarter: 2008Q3

REPORT INFORMATION
  Report Type: 
  Country: None (occurrence: None)
  Receive Date: 20080909
  Receipt Date: 20080905
  Transmission Date: 20090109
  Serious: Yes (Other)
  Sender: FDA-Public Use
  Company Number: B0536109A

PATIENT
  Sex: Male

DRUGS (3)
  1. REQUIP [Suspect]
     Indication: PARKINSON'S DISEASE
     Dosage: 6MG PER DAY
     Route: 065
  2. EFFEXOR [Concomitant]
     Indication: DEPRESSION
     Dosage: 150MG PER DAY
  3. ACETYLSALICYLIC ACID SRT [Concomitant]

REACTIONS (3)
  - FATIGUE [None]
  - HALLUCINATION [None]
  - SENSATION OF HEAVINESS [None]
